FAERS Safety Report 9626956 (Version 2)
Quarter: 2013Q4

REPORT INFORMATION
  Report Type: Report from Study
  Country: US (occurrence: US)
  Receive Date: 20131016
  Receipt Date: 20131016
  Transmission Date: 20140711
  Serious: Yes (Hospitalization)
  Sender: FDA-Public Use
  Company Number: US-ABBVIE-09P-163-0613247-00

PATIENT
  Age: 72 Year
  Sex: Male
  Weight: 71.73 kg

DRUGS (5)
  1. HUMIRA [Suspect]
     Indication: PSORIASIS
     Route: 058
     Dates: start: 20091202, end: 20091202
  2. ENALAPRIL [Concomitant]
     Indication: HYPERTENSION
     Dates: start: 2006
  3. SIMVASTATIN [Concomitant]
     Indication: DYSLIPIDAEMIA
     Dates: start: 200604
  4. TRANXENE [Concomitant]
     Indication: ANXIETY
     Dates: start: 200604
  5. ASPIRIN [Concomitant]
     Indication: CARDIAC DISORDER
     Dates: start: 200604

REACTIONS (4)
  - Cardiomegaly [Not Recovered/Not Resolved]
  - Cardiac failure congestive [Recovered/Resolved]
  - Atrioventricular block complete [Recovered/Resolved]
  - Chest pain [Recovered/Resolved]
